FAERS Safety Report 18634132 (Version 1)
Quarter: 2020Q4

REPORT INFORMATION
  Report Type: Spontaneous
  Country: US (occurrence: US)
  Receive Date: 20201218
  Receipt Date: 20201218
  Transmission Date: 20210114
  Serious: No
  Sender: FDA-Public Use
  Company Number: US-REGENERON PHARMACEUTICALS, INC.-2020-18179

PATIENT

DRUGS (2)
  1. EYLEA [Suspect]
     Active Substance: AFLIBERCEPT
     Dosage: 2 MG, Q10 WEEKS, RIGHT EYE
     Route: 031
     Dates: start: 20191018, end: 20191018
  2. EYLEA [Suspect]
     Active Substance: AFLIBERCEPT
     Indication: NEOVASCULAR AGE-RELATED MACULAR DEGENERATION
     Dosage: 2 MG, Q10 WEEKS, RIGHT EYE
     Route: 031
     Dates: start: 20180914, end: 20180914

REACTIONS (5)
  - Visual acuity reduced [Recovered/Resolved]
  - Anterior chamber flare [Recovered/Resolved]
  - Vitreal cells [Recovered/Resolved]
  - Anterior chamber cell [Recovered/Resolved]
  - Metamorphopsia [Recovered/Resolved]

NARRATIVE: CASE EVENT DATE: 20191018
